FAERS Safety Report 17472424 (Version 2)
Quarter: 2025Q1

REPORT INFORMATION
  Report Type: Spontaneous
  Country: AR (occurrence: AR)
  Receive Date: 20200228
  Receipt Date: 20250211
  Transmission Date: 20250408
  Serious: Yes (Other)
  Sender: NOVARTIS
  Company Number: AR-NOVARTISPH-PHHY2018AR041809

PATIENT
  Age: 57 Year
  Sex: Female

DRUGS (3)
  1. TOBRAMYCIN [Suspect]
     Active Substance: TOBRAMYCIN
     Indication: Product used for unknown indication
     Route: 047
  2. TOBRADEX [Suspect]
     Active Substance: DEXAMETHASONE\TOBRAMYCIN
     Indication: Hordeolum
     Route: 047
     Dates: start: 2013
  3. DEXAMETHASONE\NEOMYCIN SULFATE\POLYMYXIN B SULFATE [Suspect]
     Active Substance: DEXAMETHASONE\NEOMYCIN SULFATE\POLYMYXIN B SULFATE
     Indication: Hordeolum
     Route: 065

REACTIONS (22)
  - Herpes zoster [Not Recovered/Not Resolved]
  - Varicella zoster virus infection [Unknown]
  - Eyelid irritation [Unknown]
  - Visual impairment [Unknown]
  - Hordeolum [Recovered/Resolved]
  - Eyelid cyst [Unknown]
  - Hordeolum [Not Recovered/Not Resolved]
  - Accident [Unknown]
  - Pain in extremity [Unknown]
  - Depressed mood [Unknown]
  - Amnesia [Unknown]
  - Episcleritis [Recovered/Resolved]
  - Dysphonia [Recovering/Resolving]
  - Cough [Unknown]
  - Malaise [Unknown]
  - Drug hypersensitivity [Unknown]
  - Feeling of despair [Recovering/Resolving]
  - Ligament sprain [Unknown]
  - Temperature intolerance [Unknown]
  - Decreased immune responsiveness [Unknown]
  - Condition aggravated [Unknown]
  - Suspected product quality issue [Unknown]

NARRATIVE: CASE EVENT DATE: 20120101
